FAERS Safety Report 11013054 (Version 2)
Quarter: 2015Q2

REPORT INFORMATION
  Report Type: Spontaneous
  Country: US (occurrence: US)
  Receive Date: 20150411
  Receipt Date: 20150525
  Transmission Date: 20150821
  Serious: Yes (Other)
  Sender: FDA-Public Use
  Company Number: US-JNJFOC-20100901125

PATIENT
  Age: 36 Year
  Sex: Male
  Weight: 97.07 kg

DRUGS (11)
  1. SOMA [Concomitant]
     Active Substance: CARISOPRODOL
  2. METHOTREXATE [Concomitant]
     Active Substance: METHOTREXATE
     Indication: ANKYLOSING SPONDYLITIS
     Route: 065
  3. ALLEGRA [Concomitant]
     Active Substance: FEXOFENADINE HYDROCHLORIDE
     Indication: PREMEDICATION
     Dates: start: 201008
  4. REMICADE [Suspect]
     Active Substance: INFLIXIMAB
     Indication: ANKYLOSING SPONDYLITIS
     Route: 042
     Dates: start: 20100827, end: 20100827
  5. REMICADE [Suspect]
     Active Substance: INFLIXIMAB
     Indication: ANKYLOSING SPONDYLITIS
     Dosage: RECEIVED 7 INFUSIONS TOTAL
     Route: 042
     Dates: start: 201001
  6. VIAGRA [Concomitant]
     Active Substance: SILDENAFIL CITRATE
  7. RELAFEN [Concomitant]
     Active Substance: NABUMETONE
  8. VOLTAREN [Concomitant]
     Active Substance: DICLOFENAC SODIUM
  9. TYLENOL [Concomitant]
     Active Substance: ACETAMINOPHEN
     Indication: PREMEDICATION
  10. VICODIN [Concomitant]
     Active Substance: ACETAMINOPHEN\HYDROCODONE BITARTRATE
     Indication: PAIN
     Dosage: 5/500
  11. RESTORIL [Concomitant]
     Active Substance: TEMAZEPAM

REACTIONS (8)
  - Laryngeal oedema [Recovered/Resolved]
  - Headache [Recovered/Resolved]
  - Pharyngeal disorder [Recovered/Resolved]
  - Swelling [Recovered/Resolved]
  - Urticaria [Recovered/Resolved]
  - Rash [Recovered/Resolved]
  - Pruritus [Recovered/Resolved]
  - Infusion related reaction [Recovered/Resolved]

NARRATIVE: CASE EVENT DATE: 20100827
